FAERS Safety Report 21779378 (Version 1)
Quarter: 2022Q4

REPORT INFORMATION
  Report Type: Spontaneous
  Country: FR (occurrence: FR)
  Receive Date: 20221226
  Receipt Date: 20221226
  Transmission Date: 20230112
  Serious: Yes (Other)
  Sender: FDA-Public Use
  Company Number: FR-SA-SAC20221223001346

PATIENT
  Age: 36 Year
  Sex: Male

DRUGS (1)
  1. DUPILUMAB [Suspect]
     Active Substance: DUPILUMAB
     Indication: Asthma
     Dosage: 300 MG

REACTIONS (3)
  - Panniculitis [Unknown]
  - Post inflammatory pigmentation change [Unknown]
  - Skin mass [Unknown]

NARRATIVE: CASE EVENT DATE: 20221128
